FAERS Safety Report 25188333 (Version 2)
Quarter: 2025Q2

REPORT INFORMATION
  Report Type: Report from Study
  Country: US (occurrence: US)
  Receive Date: 20250411
  Receipt Date: 20250609
  Transmission Date: 20250716
  Serious: Yes (Other)
  Sender: TAKEDA
  Company Number: US-TAKEDA-2025TUS032518

PATIENT
  Age: 24 Year
  Sex: Male

DRUGS (2)
  1. VEDOLIZUMAB [Suspect]
     Active Substance: VEDOLIZUMAB
     Indication: Colitis ulcerative
  2. VEDOLIZUMAB [Suspect]
     Active Substance: VEDOLIZUMAB
     Indication: Proctitis ulcerative
     Dosage: 300 MILLIGRAM, Q6WEEKS

REACTIONS (4)
  - Colitis ulcerative [Recovering/Resolving]
  - Liver function test increased [Not Recovered/Not Resolved]
  - Product dose omission issue [Unknown]
  - Drug level decreased [Recovering/Resolving]

NARRATIVE: CASE EVENT DATE: 20250221
